FAERS Safety Report 6886016-4 (Version None)
Quarter: 2010Q3

REPORT INFORMATION
  Report Type: 
  Country: None (occurrence: None)
  Receive Date: 20100729
  Receipt Date: 20080827
  Transmission Date: 20110219
  Serious: No
  Sender: FDA-Public Use
  Company Number: US-PFIZER INC-2008043143

PATIENT
  Sex: Male
  Weight: 70.5 kg

DRUGS (2)
  1. CELEBREX [Suspect]
     Indication: JOINT SWELLING
     Route: 048
     Dates: start: 20080410, end: 20080517
  2. ACETYLSALICYLIC ACID SRT [Concomitant]

REACTIONS (4)
  - JOINT SWELLING [None]
  - MOUTH ULCERATION [None]
  - PHARYNGEAL ULCERATION [None]
  - VIRAL PHARYNGITIS [None]
